FAERS Safety Report 16966721 (Version 5)
Quarter: 2021Q3

REPORT INFORMATION
  Report Type: Spontaneous
  Country: US (occurrence: US)
  Receive Date: 20191028
  Receipt Date: 20210707
  Transmission Date: 20211014
  Serious: No
  Sender: FDA-Public Use
  Company Number: US-SA-2019SA290532

PATIENT
  Age: 25 Year
  Sex: Female

DRUGS (2)
  1. DUPIXENT [Suspect]
     Active Substance: DUPILUMAB
     Indication: DERMATITIS ATOPIC
     Dosage: 600 MG, 1X
     Route: 058
     Dates: start: 20190901, end: 20190901
  2. DUPIXENT [Suspect]
     Active Substance: DUPILUMAB
     Dosage: 300 MG, QOW
     Route: 058
     Dates: start: 201909, end: 202104

REACTIONS (12)
  - Eyelids pruritus [Unknown]
  - Dermatitis atopic [Unknown]
  - Swelling face [Unknown]
  - Pruritus [Unknown]
  - Erythema [Unknown]
  - Urticaria [Unknown]
  - Drug hypersensitivity [Unknown]
  - Pharyngeal swelling [Unknown]
  - Erythema of eyelid [Unknown]
  - Ocular hyperaemia [Unknown]
  - Alcohol intolerance [Unknown]
  - Hot flush [Unknown]

NARRATIVE: CASE EVENT DATE: 2019
